FAERS Safety Report 16304419 (Version 1)
Quarter: 2019Q2

REPORT INFORMATION
  Report Type: Report from Study
  Country: US (occurrence: US)
  Receive Date: 20190513
  Receipt Date: 20190513
  Transmission Date: 20190711
  Serious: Yes (Other)
  Sender: FDA-Public Use
  Company Number: US-SA-2019SA127218

PATIENT
  Age: 80 Year
  Sex: Female

DRUGS (1)
  1. INSULIN GLARGINE [Suspect]
     Active Substance: INSULIN GLARGINE
     Indication: DIABETES MELLITUS
     Dosage: DOSE 3 OR 6 OR 1 AT AN UNKNOW FREQUENCY BASED ON CONSUMER^S SUGAR LEVEL
     Route: 058

REACTIONS (2)
  - Dementia [Not Recovered/Not Resolved]
  - Wrong technique in device usage process [Unknown]
